FAERS Safety Report 4390340-7 (Version None)
Quarter: 2004Q2

REPORT INFORMATION
  Report Type: 
  Country: None (occurrence: None)
  Receive Date: 20040630
  Receipt Date: 20040616
  Transmission Date: 20050107
  Serious: Yes (Hospitalization)
  Sender: FDA-Public Use
  Company Number: GBWYE834017JUN04

PATIENT
  Age: 73 Year
  Sex: Male

DRUGS (5)
  1. RAPAMUNE [Suspect]
     Indication: IMMUNOSUPPRESSANT DRUG THERAPY
     Dosage: 2 MG 1X PER 1 DAY ORAL
     Route: 048
     Dates: start: 20040102
  2. RAPAMUNE [Suspect]
     Indication: IMMUNOSUPPRESSANT DRUG THERAPY
     Dosage: 2 MG 1X PER 1 DAY ORAL
     Route: 048
     Dates: start: 20040305
  3. PRAVASTATIN [Concomitant]
  4. AMLODIPINE [Concomitant]
  5. ALLOPURINOL [Concomitant]

REACTIONS (8)
  - BLOOD ALBUMIN INCREASED [None]
  - BLOOD CREATININE INCREASED [None]
  - HEPATIC STEATOSIS [None]
  - HYPERTRIGLYCERIDAEMIA [None]
  - IMMUNOSUPPRESSANT DRUG LEVEL INCREASED [None]
  - MEDICATION ERROR [None]
  - SPLENOMEGALY [None]
  - TREATMENT NONCOMPLIANCE [None]
